FAERS Safety Report 4295015-0 (Version None)
Quarter: 2004Q1

REPORT INFORMATION
  Report Type: 
  Country: None (occurrence: None)
  Receive Date: 20040212
  Receipt Date: 20040212
  Transmission Date: 20041129
  Serious: Yes (Death)
  Sender: FDA-Public Use
  Company Number: None

PATIENT
  Age: 67 Year
  Sex: Female
  Weight: 61.2356 kg

DRUGS (11)
  1. METFORMIN HCL [Suspect]
     Indication: DIABETES MELLITUS NON-INSULIN-DEPENDENT
     Dosage: 500 MG PO BID
     Route: 048
  2. LASIX [Concomitant]
  3. LISINOPRIL [Concomitant]
  4. OXAPRAZIN [Concomitant]
  5. PANTOPEZOLE [Concomitant]
  6. LOPRESSOR [Concomitant]
  7. HEPARIN [Concomitant]
  8. COMBIVENT [Concomitant]
  9. TRIBENCIBULAR INH [Concomitant]
  10. CARDIZEM [Concomitant]
  11. OXYCODINE [Concomitant]

REACTIONS (2)
  - METABOLIC ACIDOSIS [None]
  - RENAL FAILURE ACUTE [None]
